FAERS Safety Report 15746834 (Version 1)
Quarter: 2018Q4

REPORT INFORMATION
  Report Type: Spontaneous
  Country: US (occurrence: US)
  Receive Date: 20181220
  Receipt Date: 20181220
  Transmission Date: 20190205
  Serious: Yes (Life-Threatening)
  Sender: FDA-Public Use
  Company Number: PHEH2018US052541

PATIENT
  Sex: Female

DRUGS (1)
  1. PENICILLIN SANDOZ [Suspect]
     Active Substance: PENICILLIN
     Indication: PRODUCT USED FOR UNKNOWN INDICATION
     Dosage: UNK
     Route: 065
     Dates: start: 201809

REACTIONS (5)
  - Dyspnoea [Unknown]
  - Anaphylactic reaction [Unknown]
  - Vomiting [Unknown]
  - Apparent death [Unknown]
  - Loss of consciousness [Unknown]
